FAERS Safety Report 9894850 (Version 2)
Quarter: 2014Q1

REPORT INFORMATION
  Report Type: Spontaneous
  Country: US (occurrence: US)
  Receive Date: 20140213
  Receipt Date: 20140213
  Transmission Date: 20141002
  Serious: Yes (Disabling)
  Sender: FDA-Public Use
  Company Number: US-GE HEALTHCARE MEDICAL DIAGNOSTICS-OSCN-PR-0710S-0392

PATIENT
  Age: 79 Year
  Sex: Male

DRUGS (4)
  1. OMNISCAN [Suspect]
     Indication: ARTERIOVENOUS GRAFT
     Route: 042
     Dates: start: 20020702, end: 20020702
  2. OMNISCAN [Suspect]
     Route: 042
     Dates: start: 20021212, end: 20021212
  3. OMNISCAN [Suspect]
     Route: 042
     Dates: start: 20030213, end: 20030213
  4. OMNISCAN [Suspect]
     Route: 042
     Dates: start: 20061111, end: 20061111

REACTIONS (1)
  - Nephrogenic systemic fibrosis [Not Recovered/Not Resolved]
